FAERS Safety Report 7270020-0 (Version None)
Quarter: 2011Q1

REPORT INFORMATION
  Report Type: 
  Country: None (occurrence: None)
  Receive Date: 20110202
  Receipt Date: 20110121
  Transmission Date: 20110831
  Serious: Yes (Death)
  Sender: FDA-Public Use
  Company Number: US-ACTELION-A-US2011-43667

PATIENT

DRUGS (3)
  1. COUMADIN [Suspect]
  2. TRACLEER [Suspect]
     Indication: PULMONARY ARTERIAL HYPERTENSION
     Dosage: 125 MG, BID
     Route: 048
     Dates: start: 20080320, end: 20110101
  3. REVATIO [Concomitant]

REACTIONS (6)
  - CEREBRAL HAEMORRHAGE [None]
  - HEADACHE [None]
  - VISION BLURRED [None]
  - NAUSEA [None]
  - COMA [None]
  - VOMITING [None]
